FAERS Safety Report 14388942 (Version 3)
Quarter: 2019Q4

REPORT INFORMATION
  Report Type: Spontaneous
  Country: US (occurrence: US)
  Receive Date: 20180115
  Receipt Date: 20191126
  Transmission Date: 20200122
  Serious: Yes (Other)
  Sender: FDA-Public Use
  Company Number: US-SA-2017SA230714

PATIENT
  Age: 53 Year
  Sex: Female
  Weight: 58 kg

DRUGS (13)
  1. KETOCONAZOLE. [Concomitant]
     Active Substance: KETOCONAZOLE
     Dosage: UNK UNK, UNK
     Route: 065
     Dates: start: 200901
  2. ONDANSETRON [Concomitant]
     Active Substance: ONDANSETRON
     Dosage: UNK UNK, UNK
     Route: 065
     Dates: start: 200901
  3. TAXOTERE [Suspect]
     Active Substance: DOCETAXEL
     Indication: BREAST CANCER FEMALE
     Dosage: 120 MG, Q3W
     Route: 042
     Dates: start: 20120514, end: 20120514
  4. HERCEPTIN [Concomitant]
     Active Substance: TRASTUZUMAB
     Indication: BREAST CANCER FEMALE
     Dosage: UNK, UNK
     Route: 065
  5. AZELASTINE. [Concomitant]
     Active Substance: AZELASTINE HYDROCHLORIDE
     Dosage: UNK UNK, UNK
     Route: 065
     Dates: start: 200901
  6. CLOBETASOL PROPIONATE. [Concomitant]
     Active Substance: CLOBETASOL PROPIONATE
     Dosage: UNK UNK, UNK
     Route: 065
     Dates: start: 200901
  7. COMPAZINE [PROCHLORPERAZINE EDISYLATE] [Concomitant]
     Active Substance: PROCHLORPERAZINE EDISYLATE
     Dosage: UNK UNK, UNK
     Route: 065
     Dates: start: 200901
  8. COENZYME Q10 [Concomitant]
     Active Substance: UBIDECARENONE
     Dosage: UNK UNK, UNK
     Route: 065
     Dates: start: 200901
  9. TAXOTERE [Suspect]
     Active Substance: DOCETAXEL
     Dosage: 120 MG, Q3W
     Route: 042
     Dates: start: 20120827, end: 20120827
  10. TAMOXIFEN [Concomitant]
     Active Substance: TAMOXIFEN
     Dosage: UNK, UNK
     Route: 065
     Dates: start: 201209, end: 201403
  11. PARAPLATIN [Concomitant]
     Active Substance: CARBOPLATIN
     Dosage: UNK
     Dates: start: 20120827, end: 20120827
  12. PARAPLATIN [Concomitant]
     Active Substance: CARBOPLATIN
     Indication: BREAST CANCER FEMALE
     Dosage: UNK, UNK
     Route: 065
     Dates: start: 20120514, end: 20120514
  13. CALCIUM [Concomitant]
     Active Substance: CALCIUM
     Dosage: UNK UNK, UNK
     Route: 065
     Dates: start: 200901

REACTIONS (4)
  - Anxiety [Unknown]
  - Psychological trauma [Unknown]
  - Alopecia [Recovering/Resolving]
  - Emotional distress [Unknown]

NARRATIVE: CASE EVENT DATE: 201302
